FAERS Safety Report 6727306-5 (Version None)
Quarter: 2010Q2

REPORT INFORMATION
  Report Type: 
  Country: None (occurrence: None)
  Receive Date: 20100517
  Receipt Date: 20100510
  Transmission Date: 20101027
  Serious: Yes (Hospitalization, Other)
  Sender: FDA-Public Use
  Company Number: US-JNJFOC-20100503647

PATIENT
  Sex: Female
  Weight: 105.24 kg

DRUGS (11)
  1. TOPAMAX [Suspect]
     Indication: MIGRAINE
     Route: 048
  2. TOPAMAX [Suspect]
     Route: 048
  3. TOPAMAX [Suspect]
     Route: 048
  4. TOPAMAX [Suspect]
     Route: 048
  5. ZOCOR [Concomitant]
     Indication: BLOOD CHOLESTEROL INCREASED
     Route: 065
  6. LEVOXYL [Concomitant]
     Indication: THYROID DISORDER
     Route: 048
  7. ATENOLOL [Concomitant]
     Indication: HYPERTENSION
     Route: 048
  8. TOVIAZ [Concomitant]
     Indication: BLADDER DISORDER
     Route: 048
  9. HUMALOG [Concomitant]
     Indication: DIABETES MELLITUS
     Dosage: 1 IN AM
     Route: 058
  10. HUMALOG [Concomitant]
     Route: 058
  11. ASPIRIN [Concomitant]
     Route: 048

REACTIONS (6)
  - DISTURBANCE IN ATTENTION [None]
  - DYSPNOEA [None]
  - MENTAL IMPAIRMENT [None]
  - PNEUMONIA [None]
  - TIC [None]
  - TRIGEMINAL NEURALGIA [None]
